FAERS Safety Report 12060852 (Version 1)
Quarter: 2016Q1

REPORT INFORMATION
  Report Type: Spontaneous
  Country: US (occurrence: US)
  Receive Date: 20160210
  Receipt Date: 20160210
  Transmission Date: 20160526
  Serious: No
  Sender: FDA-Public Use
  Company Number: US-ASTRAZENECA-2016SE11163

PATIENT
  Age: 27771 Day
  Sex: Female

DRUGS (2)
  1. BYDUREON [Suspect]
     Active Substance: EXENATIDE
     Indication: TYPE 2 DIABETES MELLITUS
     Route: 058
  2. INSULIN [Concomitant]
     Active Substance: INSULIN NOS

REACTIONS (4)
  - Fall [Unknown]
  - Intentional product misuse [Unknown]
  - Limb injury [Unknown]
  - Product quality issue [Unknown]

NARRATIVE: CASE EVENT DATE: 20160126
